FAERS Safety Report 9400399 (Version 1)
Quarter: 2013Q3

REPORT INFORMATION
  Report Type: Spontaneous
  Country: GB (occurrence: GB)
  Receive Date: 20130715
  Receipt Date: 20130715
  Transmission Date: 20140515
  Serious: Yes (Life-Threatening, Hospitalization, Other)
  Sender: FDA-Public Use
  Company Number: GB-WATSON-2013-11954

PATIENT
  Age: 34 Year
  Sex: Female

DRUGS (2)
  1. AMITRIPTYLINE (UNKNOWN) [Suspect]
     Indication: OVERDOSE
     Dosage: 5600 MG, SINGLE
     Route: 065
  2. CITALOPRAM (UNKNOWN) [Suspect]
     Indication: OVERDOSE
     Dosage: 2400 MG, SINGLE
     Route: 065

REACTIONS (8)
  - Coma [Recovered/Resolved]
  - Cardiac arrest [Recovered/Resolved]
  - Ventricular tachycardia [Recovered/Resolved]
  - Electrocardiogram QRS complex prolonged [Recovered/Resolved]
  - Electrocardiogram QT prolonged [Recovered/Resolved]
  - Grand mal convulsion [Recovered/Resolved]
  - Metabolic acidosis [Recovered/Resolved]
  - Overdose [Recovered/Resolved]
